FAERS Safety Report 6601413-X (Version None)
Quarter: 2010Q1

REPORT INFORMATION
  Report Type: 
  Country: None (occurrence: None)
  Receive Date: 20100225
  Receipt Date: 20100216
  Transmission Date: 20100710
  Serious: Yes (Hospitalization)
  Sender: FDA-Public Use
  Company Number: US-ASTRAZENECA-2010SE06801

PATIENT
  Age: 83 Year
  Sex: Female
  Weight: 65.8 kg

DRUGS (2)
  1. NEXIUM [Suspect]
     Route: 048
  2. NEXIUM [Suspect]
     Dosage: TOOK 2 NEXIUM ACCIDENTALLY IN THE MORNING
     Route: 048

REACTIONS (2)
  - GALLBLADDER OPERATION [None]
  - INCORRECT DOSE ADMINISTERED [None]
